FAERS Safety Report 8135537-5 (Version None)
Quarter: 2012Q1

REPORT INFORMATION
  Report Type: 
  Country: None (occurrence: None)
  Receive Date: 20120214
  Receipt Date: 20120131
  Transmission Date: 20120608
  Serious: Yes (Hospitalization)
  Sender: FDA-Public Use
  Company Number: NO-ABBOTT-12P-122-0899788-00

PATIENT
  Sex: Female

DRUGS (6)
  1. CLARITHROMYCIN [Suspect]
     Indication: HELICOBACTER INFECTION
     Route: 048
     Dates: start: 20110501, end: 20110529
  2. METRONIDAZOLE [Suspect]
     Indication: HELICOBACTER INFECTION
     Dates: start: 20110501, end: 20110529
  3. XALATAN [Concomitant]
     Indication: GLAUCOMA
  4. COSOPT [Concomitant]
     Indication: GLAUCOMA
     Route: 047
  5. LANSOPRAZOLE [Concomitant]
     Indication: HELICOBACTER INFECTION
     Route: 048
     Dates: start: 20110501, end: 20110527
  6. LEVOTHYROXINE SODIUM [Concomitant]
     Indication: HYPOTHYROIDISM
     Route: 048

REACTIONS (2)
  - HALLUCINATION, VISUAL [None]
  - DELUSION [None]
